FAERS Safety Report 17802339 (Version 1)
Quarter: 2020Q2

REPORT INFORMATION
  Report Type: Spontaneous
  Country: US (occurrence: US)
  Receive Date: 20200518
  Receipt Date: 20200518
  Transmission Date: 20200714
  Serious: Yes (Other)
  Sender: FDA-Public Use
  Company Number: None

PATIENT
  Age: 27 Year
  Sex: Female
  Weight: 77.1 kg

DRUGS (10)
  1. FERRLECIT [Suspect]
     Active Substance: SODIUM FERRIC GLUCONATE COMPLEX
     Indication: ANAEMIA
     Dosage: ?          OTHER FREQUENCY:ONCE;?
     Route: 041
  2. LANOLIN CREAM [Concomitant]
     Dates: start: 20200508, end: 20200510
  3. ACETAMINPHEN 650 TABLET [Concomitant]
     Dates: start: 20200508, end: 20200510
  4. IBUPROFEN 800 MG TABLETS [Concomitant]
     Dates: start: 20200508, end: 20200510
  5. ONDANSETRON 4MG/2ML [Concomitant]
     Dates: start: 20200508, end: 20200508
  6. PROMETHAZINE 25 MG/50 ML [Concomitant]
     Dates: start: 20200508, end: 20200508
  7. WITCH HAZEL GLYCERIN PAD [Concomitant]
     Dates: start: 20200508, end: 20200508
  8. FERRLECIT [Suspect]
     Active Substance: SODIUM FERRIC GLUCONATE COMPLEX
     Indication: ANAEMIA
     Dosage: ?          OTHER FREQUENCY:ONCE;?
     Route: 041
  9. BENZOCAINE 20% AERO [Concomitant]
     Dates: start: 20200508, end: 20200508
  10. DOCUSATE 100 MG CAPSULE [Concomitant]
     Dates: start: 20200508, end: 20200510

REACTIONS (4)
  - Dyspnoea [None]
  - Hypotension [None]
  - Tachycardia [None]
  - Vomiting [None]

NARRATIVE: CASE EVENT DATE: 20200507
